FAERS Safety Report 24264782 (Version 1)
Quarter: 2024Q3

REPORT INFORMATION
  Report Type: Spontaneous
  Country: BR (occurrence: BR)
  Receive Date: 20240829
  Receipt Date: 20240829
  Transmission Date: 20241017
  Serious: Yes (Hospitalization)
  Sender: BAXTER
  Company Number: BR-BAXTER-2024BAX023158

PATIENT
  Age: 21 Year
  Sex: Female

DRUGS (3)
  1. IRON [Suspect]
     Active Substance: IRON
     Indication: Anaemia
     Dosage: 200 MG, DILUTED IN 250 ML OF 0.9% SALINE SOLUTION FOR 1 HOUR ONCE A WEEK
     Route: 042
     Dates: start: 20240722, end: 20240722
  2. SODIUM CHLORIDE [Suspect]
     Active Substance: SODIUM CHLORIDE
     Indication: Medication dilution
     Dosage: 250 ML OF 0.9% SALINE SOLUTION IN 200 MG SUCROFER FOR 1 HOUR, ONCE A WEEK
     Route: 042
     Dates: start: 20240722, end: 20240722
  3. PURAN [Concomitant]
     Active Substance: LEVOTHYROXINE SODIUM
     Indication: Hypothyroidism
     Dosage: 25 MCG, PER DAY
     Route: 048

REACTIONS (2)
  - Abdominal pain [Recovered/Resolved]
  - Maternal exposure during pregnancy [Unknown]

NARRATIVE: CASE EVENT DATE: 20240722
